FAERS Safety Report 26130149 (Version 1)
Quarter: 2025Q4

REPORT INFORMATION
  Report Type: Spontaneous
  Country: CN (occurrence: CN)
  Receive Date: 20251208
  Receipt Date: 20251208
  Transmission Date: 20260118
  Serious: Yes (Hospitalization, Other)
  Sender: ASTELLAS
  Company Number: CN-ASTELLAS-2025-AER-066849

PATIENT
  Age: 34 Year
  Sex: Male
  Weight: 57 kg

DRUGS (8)
  1. TACROLIMUS [Interacting]
     Active Substance: TACROLIMUS
     Indication: Renal transplant
     Route: 065
     Dates: start: 2023, end: 20240513
  2. TACROLIMUS [Interacting]
     Active Substance: TACROLIMUS
     Route: 065
     Dates: start: 20240513, end: 202409
  3. TACROLIMUS [Interacting]
     Active Substance: TACROLIMUS
     Route: 065
     Dates: start: 20240910, end: 202409
  4. TACROLIMUS [Interacting]
     Active Substance: TACROLIMUS
     Route: 065
     Dates: start: 202409, end: 202409
  5. TACROLIMUS [Interacting]
     Active Substance: TACROLIMUS
     Route: 065
     Dates: start: 20240920
  6. RIFAMPIN [Interacting]
     Active Substance: RIFAMPIN
     Indication: Meningitis tuberculous
     Route: 065
  7. RIFAMPIN [Interacting]
     Active Substance: RIFAMPIN
     Indication: Renal tuberculosis
  8. MIZORIBINE [Concomitant]
     Active Substance: MIZORIBINE
     Indication: Renal transplant
     Route: 065

REACTIONS (6)
  - Renal tuberculosis [Recovering/Resolving]
  - Encephalitis bacterial [Recovering/Resolving]
  - Hydrocephalus [Recovering/Resolving]
  - Brain abscess [Recovering/Resolving]
  - Renal graft infection [Recovering/Resolving]
  - Drug interaction [Unknown]

NARRATIVE: CASE EVENT DATE: 20240201
